FAERS Safety Report 14680070 (Version 1)
Quarter: 2018Q1

REPORT INFORMATION
  Report Type: Spontaneous
  Country: US (occurrence: US)
  Receive Date: 20180325
  Receipt Date: 20180325
  Transmission Date: 20180509
  Serious: Yes (Hospitalization)
  Sender: FDA-Public Use
  Company Number: None

PATIENT
  Age: 70 Year
  Sex: Female
  Weight: 58.5 kg

DRUGS (14)
  1. ADVAR DISKUS INHALER [Concomitant]
  2. EFFEXOR XR [Concomitant]
     Active Substance: VENLAFAXINE HYDROCHLORIDE
  3. OMEPRAZOLE. [Concomitant]
     Active Substance: OMEPRAZOLE
  4. SINGULAIR [Concomitant]
     Active Substance: MONTELUKAST SODIUM
  5. VITAMIN D [Concomitant]
     Active Substance: CHOLECALCIFEROL
  6. VITAMIN C [Concomitant]
     Active Substance: ASCORBIC ACID
  7. ZOCOR [Concomitant]
     Active Substance: SIMVASTATIN
  8. PREDNISONE. [Concomitant]
     Active Substance: PREDNISONE
  9. LOW DOSE ASPIRIN [Suspect]
     Active Substance: ASPIRIN
  10. CENTRUM MULTIVITAMIN [Concomitant]
  11. DULCOLAX NOS [Suspect]
     Active Substance: BISACODYL OR DOCUSATE SODIUM
  12. PROLIA [Suspect]
     Active Substance: DENOSUMAB
     Indication: OSTEOPENIA
     Dosage: ?          OTHER FREQUENCY:BIANNUAL INJECTION;?
  13. RHINOCORT AQUA SPRAY [Concomitant]
  14. VALTREX [Concomitant]
     Active Substance: VALACYCLOVIR HYDROCHLORIDE

REACTIONS (2)
  - Femur fracture [None]
  - Sciatica [None]

NARRATIVE: CASE EVENT DATE: 20180323
